FAERS Safety Report 9691370 (Version 1)
Quarter: 2013Q4

REPORT INFORMATION
  Report Type: Spontaneous
  Country: US (occurrence: US)
  Receive Date: 20131115
  Receipt Date: 20131115
  Transmission Date: 20140711
  Serious: Yes (Other)
  Sender: FDA-Public Use
  Company Number: US-SA-2013SA114964

PATIENT
  Age: 69 Year
  Sex: Male

DRUGS (9)
  1. PREDNISONE [Suspect]
     Indication: GRAFT VERSUS HOST DISEASE IN INTESTINE
     Route: 048
  2. FLUDARABINE PHOSPHATE [Suspect]
     Indication: BONE MARROW CONDITIONING REGIMEN
     Route: 065
  3. SIROLIMUS [Suspect]
     Indication: IMMUNOSUPPRESSION
     Route: 065
  4. SULFAMETHOXAZOLE [Suspect]
     Indication: PRODUCT USED FOR UNKNOWN INDICATION
     Route: 065
  5. MELPHALAN [Concomitant]
     Indication: BONE MARROW CONDITIONING REGIMEN
  6. TACROLIMUS [Concomitant]
     Indication: IMMUNOSUPPRESSION
  7. METHOTREXATE [Concomitant]
     Indication: IMMUNOSUPPRESSION
  8. VALGANCICLOVIR [Concomitant]
     Indication: CYTOMEGALOVIRUS INFECTION
  9. BUDESONIDE [Concomitant]
     Indication: GRAFT VERSUS HOST DISEASE IN INTESTINE

REACTIONS (4)
  - Bone marrow failure [Recovering/Resolving]
  - Platelet count decreased [Recovering/Resolving]
  - White blood cell count decreased [Recovering/Resolving]
  - Off label use [Unknown]
